FAERS Safety Report 16766164 (Version 2)
Quarter: 2020Q3

REPORT INFORMATION
  Report Type: Spontaneous
  Country: US (occurrence: US)
  Receive Date: 20190903
  Receipt Date: 20200723
  Transmission Date: 20201102
  Serious: Yes (Hospitalization, Other)
  Sender: FDA-Public Use
  Company Number: US-HIKMA PHARMACEUTICALS USA INC.-US-H14001-19-04702

PATIENT
  Sex: Female

DRUGS (1)
  1. BOSENTAN. [Suspect]
     Active Substance: BOSENTAN
     Indication: PRODUCT USED FOR UNKNOWN INDICATION
     Dosage: UNKNOWN
     Route: 065

REACTIONS (9)
  - Bone pain [Unknown]
  - Oedema peripheral [Unknown]
  - Condition aggravated [Unknown]
  - Abdominal pain upper [Unknown]
  - Scar [Unknown]
  - Pain in extremity [Unknown]
  - Skin exfoliation [Unknown]
  - Arthralgia [Unknown]
  - Back pain [Unknown]
